FAERS Safety Report 7273660-8 (Version None)
Quarter: 2011Q1

REPORT INFORMATION
  Report Type: 
  Country: None (occurrence: None)
  Receive Date: 20110203
  Receipt Date: 20110202
  Transmission Date: 20110831
  Serious: Yes (Other)
  Sender: FDA-Public Use
  Company Number: JP-PFIZER INC-2011023501

PATIENT
  Age: 59 Year
  Sex: Female
  Weight: 51 kg

DRUGS (4)
  1. BLOPRESS [Concomitant]
     Dosage: 4 MG, 1X/DAY
     Route: 048
     Dates: start: 20091020
  2. SUNITINIB MALATE [Suspect]
     Indication: METASTATIC RENAL CELL CARCINOMA
     Dosage: 25 MG, 1X/DAY
     Dates: start: 20081219
  3. FERROUS CITRATE [Concomitant]
     Indication: METASTATIC RENAL CELL CARCINOMA
     Dosage: 50 MG, 2X/DAY
     Route: 048
  4. AMLODIPINE [Concomitant]
     Dosage: 2.5 MG, 1X/DAY
     Route: 048
     Dates: start: 20091020

REACTIONS (1)
  - ULCERATIVE KERATITIS [None]
